FAERS Safety Report 7994576-5 (Version None)
Quarter: 2011Q4

REPORT INFORMATION
  Report Type: 
  Country: None (occurrence: None)
  Receive Date: 20111220
  Receipt Date: 20111212
  Transmission Date: 20120403
  Serious: Yes (Hospitalization)
  Sender: FDA-Public Use
  Company Number: IT-PFIZER INC-2011306807

PATIENT
  Age: 57 Year
  Sex: Male

DRUGS (10)
  1. ZYPREXA [Suspect]
     Indication: PSYCHOTIC DISORDER
     Dosage: 10 MG, 2X/DAY
     Route: 048
     Dates: start: 20090101, end: 20111014
  2. BENEXOL [Concomitant]
     Indication: HYPOVITAMINOSIS
  3. PREFOLIC [Concomitant]
     Indication: VITAMIN SUPPLEMENTATION
     Dosage: 15 MG
     Route: 048
  4. IRON B [Concomitant]
     Indication: DEFICIENCY ANAEMIA
     Route: 048
  5. PANTOPRAZOLE SODIUM [Suspect]
     Indication: PROPHYLAXIS AGAINST GASTROINTESTINAL ULCER
     Dosage: UNK
     Route: 048
     Dates: start: 20090101, end: 20111014
  6. NORVASC [Suspect]
     Indication: HYPERTENSION
     Dosage: 10 MG, UNK
     Route: 048
     Dates: start: 20090101, end: 20111014
  7. HALOPERIDOL [Suspect]
     Indication: PSYCHOTIC DISORDER
     Dosage: 2 MG/ML
     Route: 030
     Dates: start: 20090101, end: 20111014
  8. LASIX [Suspect]
     Indication: OEDEMA
     Dosage: 500 MG, 5 IN 1 D
     Route: 048
     Dates: start: 20090101, end: 20111014
  9. LEKOVIT CA [Concomitant]
     Dosage: 600 MG
     Route: 048
  10. SELEPARINA [Concomitant]
     Indication: THROMBOSIS PROPHYLAXIS
     Dosage: 0.3 ML, UNK
     Route: 058

REACTIONS (1)
  - CONFUSIONAL STATE [None]
